FAERS Safety Report 13924555 (Version 1)
Quarter: 2017Q3

REPORT INFORMATION
  Report Type: Report from Study
  Country: None (occurrence: CA)
  Receive Date: 20170831
  Receipt Date: 20170831
  Transmission Date: 20171127
  Serious: Yes (Other)
  Sender: FDA-Public Use
  Company Number: CA-ABBVIE-17K-028-2083220-00

PATIENT
  Sex: Female

DRUGS (1)
  1. HUMIRA [Suspect]
     Active Substance: ADALIMUMAB
     Indication: CROHN^S DISEASE
     Route: 058
     Dates: start: 20090707

REACTIONS (7)
  - Rectal prolapse [Recovered/Resolved]
  - Rectal discharge [Recovered/Resolved]
  - Cholelithiasis [Recovered/Resolved]
  - Rectal abscess [Unknown]
  - Rectal obstruction [Recovered/Resolved]
  - Stress [Recovered/Resolved]
  - Aphthous ulcer [Not Recovered/Not Resolved]

NARRATIVE: CASE EVENT DATE: 2013
